FAERS Safety Report 16777360 (Version 1)
Quarter: 2019Q4

REPORT INFORMATION
  Report Type: Spontaneous
  Country: US (occurrence: US)
  Receive Date: 20190905
  Receipt Date: 20190905
  Transmission Date: 20200122
  Serious: Yes (Life-Threatening)
  Sender: FDA-Public Use
  Company Number: None

PATIENT
  Age: 49 Year
  Sex: Female
  Weight: 50.4 kg

DRUGS (11)
  1. CELEBREX [Concomitant]
     Active Substance: CELECOXIB
  2. TRULANCE [Suspect]
     Active Substance: PLECANATIDE
     Indication: GASTROINTESTINAL DISORDER
     Dosage: ?          QUANTITY:1 TABLET(S);?
     Dates: start: 20190903, end: 20190904
  3. VICODIN [Concomitant]
     Active Substance: ACETAMINOPHEN\HYDROCODONE BITARTRATE
  4. METOPROLOL. [Concomitant]
     Active Substance: METOPROLOL
  5. MIDODRINE [Concomitant]
     Active Substance: MIDODRINE
  6. PROTOPIC NORFLEX [Concomitant]
  7. ALBUTEROL NEBULIZER [Concomitant]
     Active Substance: ALBUTEROL
  8. EPIPEN [Concomitant]
     Active Substance: EPINEPHRINE
  9. MAGNESIUM CITRATE. [Concomitant]
     Active Substance: MAGNESIUM CITRATE
  10. ANTI-NAUSEA MEDICATION [Concomitant]
     Active Substance: UNSPECIFIED INGREDIENT
  11. SODIUM TABLETS [Concomitant]

REACTIONS (6)
  - Heart rate increased [None]
  - Chills [None]
  - Abdominal pain upper [None]
  - Back pain [None]
  - Heart rate irregular [None]
  - Dyspnoea [None]

NARRATIVE: CASE EVENT DATE: 20190905
